FAERS Safety Report 10074510 (Version 1)
Quarter: 2014Q2

REPORT INFORMATION
  Report Type: Spontaneous
  Country: US (occurrence: US)
  Receive Date: 20140411
  Receipt Date: 20140411
  Transmission Date: 20141212
  Serious: No
  Sender: FDA-Public Use
  Company Number: US-SA-2013SA116407

PATIENT
  Age: 29 Year
  Sex: Female

DRUGS (2)
  1. ALLEGRA D [Suspect]
     Route: 065
     Dates: start: 20131104
  2. ZICAM [Concomitant]

REACTIONS (3)
  - Back pain [Not Recovered/Not Resolved]
  - Abdominal pain [Not Recovered/Not Resolved]
  - Drug administration error [Unknown]
